FAERS Safety Report 4616878-2 (Version None)
Quarter: 2005Q1

REPORT INFORMATION
  Report Type: 
  Country: None (occurrence: None)
  Receive Date: 20050321
  Receipt Date: 20050307
  Transmission Date: 20050727
  Serious: Yes (Life-Threatening, Hospitalization)
  Sender: FDA-Public Use
  Company Number: 2005026862

PATIENT
  Age: 85 Year
  Sex: Female

DRUGS (6)
  1. CABERGOLINE [Suspect]
     Indication: PARKINSON'S DISEASE
     Dosage: 1 MG (1 MG, 1 IN 1 D), ORAL
     Route: 048
     Dates: start: 20050120, end: 20050201
  2. SINEMET (LEVODOPA) [Concomitant]
  3. OXYBUTYNIN CHLORIDE [Concomitant]
  4. SENNA LEAF (SENNA LEAF) [Concomitant]
  5. BUFFERIN (ACETYLSALICYLIC ACID, ALUMINIUM CLYCINATE, MAGNESIUM CARBONA [Concomitant]
  6. TALIPEXOLE HYDROCHLORIDE (TALIPEXOLE HYDROCHLORIDE) [Concomitant]

REACTIONS (5)
  - ILEUS [None]
  - INTERSTITIAL LUNG DISEASE [None]
  - ORAL INTAKE REDUCED [None]
  - SOMNOLENCE [None]
  - VOMITING [None]
